FAERS Safety Report 11616954 (Version 2)
Quarter: 2016Q3

REPORT INFORMATION
  Report Type: Spontaneous
  Country: US (occurrence: US)
  Receive Date: 20151009
  Receipt Date: 20160815
  Transmission Date: 20161109
  Serious: Yes (Other)
  Sender: FDA-Public Use
  Company Number: US-BAYER-2015-434781

PATIENT
  Age: 54 Year
  Sex: Male
  Weight: 103.4 kg

DRUGS (3)
  1. CIPROFLOXACIN. [Suspect]
     Active Substance: CIPROFLOXACIN
     Indication: RESPIRATORY TRACT INFECTION
     Dosage: UNK
     Dates: start: 20070424
  2. LEVAQUIN [Concomitant]
     Active Substance: LEVOFLOXACIN
     Indication: RESPIRATORY TRACT INFECTION
     Dosage: DAILY DOSE 500 MG
     Dates: start: 200803
  3. AVELOX [Suspect]
     Active Substance: MOXIFLOXACIN HYDROCHLORIDE
     Indication: BRONCHITIS
     Dosage: 400 MG, QD
     Dates: start: 20080426, end: 20080428

REACTIONS (7)
  - Neuropathy peripheral [Not Recovered/Not Resolved]
  - Anxiety [None]
  - Pain [None]
  - Injury [None]
  - Quality of life decreased [None]
  - Neuropathy peripheral [Not Recovered/Not Resolved]
  - Emotional distress [None]

NARRATIVE: CASE EVENT DATE: 200804
